FAERS Safety Report 9403690 (Version 1)
Quarter: 2013Q3

REPORT INFORMATION
  Report Type: Spontaneous
  Country: US (occurrence: None)
  Receive Date: 20130715
  Receipt Date: 20130715
  Transmission Date: 20140515
  Serious: Yes (Hospitalization)
  Sender: FDA-Public Use
  Company Number: None

PATIENT
  Age: 75 Year
  Sex: Male

DRUGS (1)
  1. CYCLOBENZAPRINE [Suspect]
     Dosage: MG  PO?~04/23/2013 THRU N/A
     Route: 048
     Dates: start: 20130423

REACTIONS (1)
  - Urinary retention [None]
